FAERS Safety Report 19714077 (Version 1)
Quarter: 2021Q3

REPORT INFORMATION
  Report Type: Report from Study
  Country: IT (occurrence: IT)
  Receive Date: 20210818
  Receipt Date: 20210818
  Transmission Date: 20211014
  Serious: Yes (Hospitalization)
  Sender: FDA-Public Use
  Company Number: IT-AUROBINDO-AUR-APL-2021-033439

PATIENT
  Age: 11 Year
  Sex: Male

DRUGS (2)
  1. IMMUNOGLOBULIN [IMMUNOGLOBULINS NOS] [Suspect]
     Active Substance: IMMUNE GLOBULIN NOS
     Indication: PRODUCT USED FOR UNKNOWN INDICATION
     Dosage: UNK
     Route: 042
  2. PARACETAMOL [Suspect]
     Active Substance: ACETAMINOPHEN
     Indication: PNEUMONIA
     Dosage: UNK
     Route: 065

REACTIONS (6)
  - Cheilitis [Unknown]
  - Conjunctivitis [Unknown]
  - Mucosal inflammation [Unknown]
  - Rash [Unknown]
  - Blister [Unknown]
  - Mucocutaneous disorder [Recovered/Resolved]
